FAERS Safety Report 8875012 (Version 1)
Quarter: 2012Q4

REPORT INFORMATION
  Report Type: 
  Country: US (occurrence: US)
  Receive Date: 20121029
  Receipt Date: 20121029
  Transmission Date: 20130627
  Serious: No
  Sender: FDA-Public Use
  Company Number: US-PFIZER INC-2012268437

PATIENT
  Age: 39 Year
  Sex: Female
  Weight: 68.03 kg

DRUGS (2)
  1. NEURONTIN [Suspect]
     Indication: FIBROMYALGIA
     Dosage: 100 mg, 2x/day
     Dates: start: 2010, end: 201010
  2. IRON [Concomitant]
     Dosage: 55 mg, daily
     Route: 048

REACTIONS (2)
  - Fibromyalgia [Recovering/Resolving]
  - Malaise [Recovering/Resolving]
